FAERS Safety Report 4989986-4 (Version None)
Quarter: 2006Q2

REPORT INFORMATION
  Report Type: 
  Country: None (occurrence: None)
  Receive Date: 20060428
  Receipt Date: 20060417
  Transmission Date: 20061013
  Serious: Yes (Hospitalization, Other)
  Sender: FDA-Public Use
  Company Number: 200610498GDS

PATIENT
  Age: 61 Year
  Sex: Female
  Weight: 61 kg

DRUGS (3)
  1. CIPROFLOXACIN [Suspect]
     Indication: DIVERTICULITIS
     Dosage: 500 MG BID ORAL
     Route: 048
     Dates: start: 20041005, end: 20041012
  2. METRONIDAZOLE [Suspect]
     Indication: DIVERTICULITIS
     Dosage: 500 MG TID ORAL
     Route: 048
     Dates: start: 20041005, end: 20041012
  3. ACETAMINOPHEN [Concomitant]

REACTIONS (6)
  - ARTHRALGIA [None]
  - GOUT [None]
  - HYPERURICAEMIA [None]
  - NECK PAIN [None]
  - OEDEMA [None]
  - SHOULDER PAIN [None]
